FAERS Safety Report 7907993-6 (Version None)
Quarter: 2011Q4

REPORT INFORMATION
  Report Type: 
  Country: None (occurrence: None)
  Receive Date: 20111110
  Receipt Date: 20111103
  Transmission Date: 20120403
  Serious: Yes (Other)
  Sender: FDA-Public Use
  Company Number: FR-GILEAD-2011-0046219

PATIENT
  Sex: Female

DRUGS (1)
  1. EFAVIRENZ/EMTRICITABINE/TENOFOVIR DISOPROXIL FUMARATE [Suspect]
     Dosage: 600 MG, UNK
     Route: 048
     Dates: start: 20100420, end: 20110901

REACTIONS (3)
  - CHALAZION [None]
  - ALLERGIC KERATITIS [None]
  - DRUG HYPERSENSITIVITY [None]
